FAERS Safety Report 8905026 (Version 3)
Quarter: 2013Q2

REPORT INFORMATION
  Report Type: Spontaneous
  Country: US (occurrence: US)
  Receive Date: 20121109
  Receipt Date: 20130611
  Transmission Date: 20140414
  Serious: Yes (Hospitalization)
  Sender: FDA-Public Use
  Company Number: US-ASTRAZENECA-2012SE84730

PATIENT
  Age: 69 Year
  Sex: Female
  Weight: 90.7 kg

DRUGS (13)
  1. SEROQUEL XR [Suspect]
     Indication: SLEEP DISORDER
     Route: 048
  2. SEROQUEL XR [Suspect]
     Indication: BIPOLAR DISORDER
     Route: 048
  3. SEROQUEL XR [Suspect]
     Indication: SLEEP DISORDER
     Route: 048
     Dates: start: 201104, end: 201301
  4. SEROQUEL XR [Suspect]
     Indication: BIPOLAR DISORDER
     Route: 048
     Dates: start: 201104, end: 201301
  5. SEROQUEL XR [Suspect]
     Indication: SLEEP DISORDER
     Dosage: 400 MG, DAILY AT NIGHT, GENERIC
     Route: 048
     Dates: start: 201301
  6. SEROQUEL XR [Suspect]
     Indication: BIPOLAR DISORDER
     Dosage: 400 MG, DAILY AT NIGHT, GENERIC
     Route: 048
     Dates: start: 201301
  7. LEVOTHYROXINE [Concomitant]
  8. CLONIDINE [Concomitant]
     Indication: BLOOD PRESSURE ABNORMAL
  9. CLONIDINE [Concomitant]
     Indication: BLOOD PRESSURE ABNORMAL
  10. GLIPIZIDE [Concomitant]
     Indication: DIABETES MELLITUS
  11. GLIPIZIDE [Concomitant]
     Indication: DIABETES MELLITUS
  12. DIVALPROEX [Concomitant]
     Indication: NERVOUS SYSTEM DISORDER
  13. AMLODIPINE BESYLATE [Concomitant]
     Indication: BLOOD PRESSURE ABNORMAL

REACTIONS (15)
  - Depression [Not Recovered/Not Resolved]
  - Mania [Not Recovered/Not Resolved]
  - Insomnia [Unknown]
  - Memory impairment [Unknown]
  - Feeling abnormal [Unknown]
  - Bipolar disorder [Unknown]
  - Social avoidant behaviour [Unknown]
  - Confusional state [Unknown]
  - Activities of daily living impaired [Unknown]
  - Panic disorder [Not Recovered/Not Resolved]
  - Fear [Not Recovered/Not Resolved]
  - Hallucination, visual [Unknown]
  - Nightmare [Unknown]
  - Drug dose omission [Unknown]
  - Off label use [Unknown]
